FAERS Safety Report 10137442 (Version 3)
Quarter: 2014Q3

REPORT INFORMATION
  Report Type: Spontaneous
  Country: IT (occurrence: IT)
  Receive Date: 20140429
  Receipt Date: 20140910
  Transmission Date: 20150326
  Serious: Yes (Other)
  Sender: FDA-Public Use
  Company Number: IT-ELI_LILLY_AND_COMPANY-IT201404007702

PATIENT
  Age: 28 Year
  Sex: Female

DRUGS (4)
  1. OLANZAPIN [Suspect]
     Active Substance: OLANZAPINE
     Indication: PSYCHOTIC DISORDER
  2. ZYPREXA [Suspect]
     Active Substance: OLANZAPINE
     Indication: PSYCHOTIC DISORDER
  3. OLANZAPIN [Suspect]
     Active Substance: OLANZAPINE
     Indication: PSYCHOTIC DISORDER
     Dosage: 130 MG, SINGLE
     Route: 048
     Dates: start: 20130611, end: 20130611
  4. ZYPREXA [Suspect]
     Active Substance: OLANZAPINE
     Indication: PSYCHOTIC DISORDER
     Dosage: 100 MG, SINGLE
     Route: 048
     Dates: start: 20130611, end: 20130611

REACTIONS (5)
  - Sinus tachycardia [Recovered/Resolved]
  - Self injurious behaviour [Unknown]
  - Intentional overdose [Unknown]
  - Mood altered [Unknown]
  - Suicide attempt [Unknown]

NARRATIVE: CASE EVENT DATE: 20130611
